FAERS Safety Report 19901304 (Version 1)
Quarter: 2021Q3

REPORT INFORMATION
  Report Type: Spontaneous
  Country: US (occurrence: US)
  Receive Date: 20210929
  Receipt Date: 20210929
  Transmission Date: 20211014
  Serious: Yes (Other)
  Sender: FDA-Public Use
  Company Number: US-OTSUKA-2021_032822

PATIENT
  Age: 59 Year
  Sex: Female

DRUGS (1)
  1. REXULTI [Suspect]
     Active Substance: BREXPIPRAZOLE
     Indication: BIPOLAR DISORDER
     Dosage: 0.5 MG
     Route: 065
     Dates: start: 20210916

REACTIONS (15)
  - Confusional state [Unknown]
  - Headache [Unknown]
  - Diarrhoea haemorrhagic [Unknown]
  - Productive cough [Unknown]
  - Pollakiuria [Unknown]
  - Fatigue [Unknown]
  - Insomnia [Unknown]
  - Feeling abnormal [Unknown]
  - Thirst [Unknown]
  - Dysphagia [Unknown]
  - Product use in unapproved indication [Unknown]
  - Agitation [Unknown]
  - Dizziness [Unknown]
  - Somnolence [Unknown]
  - Dry mouth [Unknown]

NARRATIVE: CASE EVENT DATE: 20210916
